FAERS Safety Report 15680044 (Version 2)
Quarter: 2019Q1

REPORT INFORMATION
  Report Type: Spontaneous
  Country: AU (occurrence: AU)
  Receive Date: 20181203
  Receipt Date: 20190312
  Transmission Date: 20190417
  Serious: Yes (Other)
  Sender: FDA-Public Use
  Company Number: AU-SUN PHARMACEUTICAL INDUSTRIES LTD-2018R1-178698

PATIENT
  Age: 62 Year
  Sex: Female

DRUGS (2)
  1. HYDROXYCHLOROQUINE [Suspect]
     Active Substance: HYDROXYCHLOROQUINE
     Indication: RHEUMATOID ARTHRITIS
     Dosage: 400 MILLIGRAM, DAILY (5.6 MG/KG)
     Route: 065
  2. HYDROXYCHLOROQUINE [Suspect]
     Active Substance: HYDROXYCHLOROQUINE
     Dosage: 600 MILLIGRAM, DAILY (8.3 MG/KG)
     Route: 065

REACTIONS (2)
  - Maculopathy [Not Recovered/Not Resolved]
  - Retinal toxicity [Not Recovered/Not Resolved]

NARRATIVE: CASE EVENT DATE: 2013
